FAERS Safety Report 4473972-7 (Version None)
Quarter: 2004Q4

REPORT INFORMATION
  Report Type: 
  Country: None (occurrence: None)
  Receive Date: 20041014
  Receipt Date: 20010606
  Transmission Date: 20050328
  Serious: Yes (Hospitalization)
  Sender: FDA-Public Use
  Company Number: PHRM2001FR01399

PATIENT
  Age: 77 Year
  Sex: Female
  Weight: 83 kg

DRUGS (9)
  1. ESIDRIX [Suspect]
     Dosage: 25 MG, QD
     Route: 048
     Dates: start: 20010327, end: 20010411
  2. LOXEN/CARDENE [Suspect]
     Dosage: 50 MG, BID
     Route: 048
     Dates: start: 20010331, end: 20010411
  3. PHYSIOTENS ^SOLVAY^ [Suspect]
     Dosage: .2 MG, QD
     Dates: start: 20010331, end: 20010411
  4. HYPERIUM [Suspect]
     Dosage: 1 MG, QD
     Route: 048
     Dates: start: 20010331, end: 20010410
  5. LASILIX [Concomitant]
     Dosage: 60 MG, QD
     Route: 048
     Dates: start: 20010201
  6. LASILIX [Suspect]
     Dosage: 40 MG, TID
     Route: 048
     Dates: start: 20010327, end: 20010411
  7. ETIOVEN [Concomitant]
     Dosage: 20 MG PER DAY
     Route: 048
     Dates: start: 20010327, end: 20010411
  8. TRIATEC [Concomitant]
     Dosage: 10 MG PER DAY
     Route: 048
     Dates: start: 20010201
  9. TENORMIN [Concomitant]
     Dosage: 100 MG DAILY
     Route: 048
     Dates: start: 20010201

REACTIONS (4)
  - DIZZINESS [None]
  - HYPOTENSION [None]
  - MALAISE [None]
  - NAUSEA [None]
